FAERS Safety Report 9516056 (Version 1)
Quarter: 2013Q1

REPORT INFORMATION
  Report Type: Spontaneous
  Country: US (occurrence: None)
  Receive Date: 20130305
  Receipt Date: 20130305
  Transmission Date: 20140127
  Serious: Yes (Other)
  Sender: FDA-Public Use
  Company Number: 163-21880-12120112

PATIENT
  Age: 68 Year
  Sex: Male
  Weight: 71.67 kg

DRUGS (7)
  1. REVLIMID (LENALIDOMIDE) (25 MILLIGRAM, CAPSULES) [Suspect]
     Indication: PLASMA CELL MYELOMA
     Dosage: 25 MG, 1 IN 1 D,  PO
     Route: 048
     Dates: start: 20070306, end: 20121001
  2. REVLIMID (LENALIDOMIDE) (25 MILLIGRAM, CAPSULES) [Suspect]
     Indication: AMYLOIDOSIS
     Dosage: 25 MG, 1 IN 1 D,  PO
     Route: 048
     Dates: start: 20070306, end: 20121001
  3. DEXAMETHASONE (DEXAMETHASONE) (UNKNOWN) [Concomitant]
  4. FUROSEMIDE (FUROSEMIDE) (TABLETS) [Concomitant]
  5. RANITIDINE HCL (RANITIDINE HYDROCHLORIDE) (UNKNOWN) [Concomitant]
  6. WARFARIN SODIUM (WARFARIN SODIUM) (UNKNOWN) [Concomitant]
  7. CYTOXAN (CYCLOPHOSPHAMIDE) (UNKNOWN) [Concomitant]

REACTIONS (1)
  - Hypotension [None]
